FAERS Safety Report 4717842-5 (Version None)
Quarter: 2005Q3

REPORT INFORMATION
  Report Type: 
  Country: None (occurrence: None)
  Receive Date: 20050720
  Receipt Date: 20050708
  Transmission Date: 20060218
  Serious: Yes (Other)
  Sender: FDA-Public Use
  Company Number: DE-JNJFOC-20050601566

PATIENT
  Age: 40 Year
  Sex: Female

DRUGS (3)
  1. INFLIXIMAB [Suspect]
     Dosage: 3RD INFUSION.
     Route: 042
  2. INFLIXIMAB [Suspect]
     Indication: CROHN'S DISEASE
     Route: 042
  3. LEFLUNOMIDE [Suspect]
     Indication: CROHN'S DISEASE

REACTIONS (3)
  - HERPES ZOSTER [None]
  - LUPUS-LIKE SYNDROME [None]
  - SEPSIS [None]
